FAERS Safety Report 10923841 (Version 1)
Quarter: 2015Q1

REPORT INFORMATION
  Report Type: Spontaneous
  Country: GB (occurrence: GB)
  Receive Date: 20150318
  Receipt Date: 20150318
  Transmission Date: 20150721
  Serious: Yes (Congenital Anomaly, Other)
  Sender: FDA-Public Use
  Company Number: GB-ACCORD-029194

PATIENT
  Age: 1 Hour
  Sex: Male

DRUGS (1)
  1. AMITRIPTYLINE [Suspect]
     Active Substance: AMITRIPTYLINE
     Indication: FACIAL NEURALGIA
     Route: 064

REACTIONS (4)
  - Spinal deformity [Not Recovered/Not Resolved]
  - Aorticopulmonary septal defect [Not Recovered/Not Resolved]
  - Off label use [Unknown]
  - Foetal exposure during pregnancy [Unknown]
